FAERS Safety Report 11125175 (Version 2)
Quarter: 2015Q4

REPORT INFORMATION
  Report Type: Report from Study
  Country: AR (occurrence: AR)
  Receive Date: 20150520
  Receipt Date: 20151106
  Transmission Date: 20160304
  Serious: Yes (Other)
  Sender: FDA-Public Use
  Company Number: AR-ABBVIE-15K-007-1370773-00

PATIENT
  Age: 35 Year
  Sex: Male

DRUGS (1)
  1. HUMIRA [Suspect]
     Active Substance: ADALIMUMAB
     Indication: CROHN^S DISEASE
     Route: 058
     Dates: start: 20110901, end: 2014

REACTIONS (6)
  - Pelvic abscess [Recovering/Resolving]
  - Unevaluable event [Unknown]
  - Anal fistula [Unknown]
  - Medical device complication [Unknown]
  - Anal injury [Unknown]
  - Anal abscess [Unknown]

NARRATIVE: CASE EVENT DATE: 201309
